FAERS Safety Report 9670981 (Version 3)
Quarter: 2013Q4

REPORT INFORMATION
  Report Type: Report from Study
  Country: JP (occurrence: JP)
  Receive Date: 20131106
  Receipt Date: 20131226
  Transmission Date: 20140711
  Serious: Yes (Hospitalization, Other)
  Sender: FDA-Public Use
  Company Number: JP-ROCHE-1269746

PATIENT
  Age: 92 Year
  Sex: Male
  Weight: 58 kg

DRUGS (16)
  1. METHOXY POLYETHYLENE GLYCOL-EPOETIN BETA [Suspect]
     Indication: NEPHROGENIC ANAEMIA
     Route: 042
     Dates: start: 20110910, end: 20110910
  2. METHOXY POLYETHYLENE GLYCOL-EPOETIN BETA [Suspect]
     Indication: NEPHROGENIC ANAEMIA
     Route: 042
     Dates: start: 20111008, end: 20111008
  3. METHOXY POLYETHYLENE GLYCOL-EPOETIN BETA [Suspect]
     Indication: NEPHROGENIC ANAEMIA
     Route: 042
     Dates: start: 20111112, end: 20111112
  4. METHOXY POLYETHYLENE GLYCOL-EPOETIN BETA [Suspect]
     Indication: NEPHROGENIC ANAEMIA
     Route: 042
     Dates: start: 20111210, end: 20120512
  5. FESIN (JAPAN) [Concomitant]
     Indication: GLOMERULONEPHRITIS CHRONIC
     Route: 042
     Dates: start: 20110512, end: 20110714
  6. FESIN (JAPAN) [Concomitant]
     Indication: GLOMERULONEPHRITIS CHRONIC
     Route: 042
     Dates: start: 20110825, end: 20111029
  7. FESIN (JAPAN) [Concomitant]
     Indication: GLOMERULONEPHRITIS CHRONIC
     Route: 042
     Dates: start: 20111217, end: 20120218
  8. FESIN (JAPAN) [Concomitant]
     Indication: GLOMERULONEPHRITIS CHRONIC
     Route: 042
     Dates: start: 20120414, end: 20120901
  9. OMEPRAZOLE [Concomitant]
     Indication: PROPHYLAXIS
     Route: 048
  10. ROCALTROL [Concomitant]
     Route: 048
  11. ONON [Concomitant]
     Route: 048
  12. THEOLONG [Concomitant]
     Route: 048
  13. ULGUT [Concomitant]
     Route: 048
  14. BAYASPIRIN [Concomitant]
     Route: 048
  15. VASOLAN [Concomitant]
     Route: 048
  16. MYSLEE [Concomitant]
     Route: 048

REACTIONS (2)
  - Adenocarcinoma gastric [Not Recovered/Not Resolved]
  - Drug ineffective [Unknown]
